FAERS Safety Report 4769881-6 (Version None)
Quarter: 2005Q3

REPORT INFORMATION
  Report Type: 
  Country: None (occurrence: None)
  Receive Date: 20050908
  Receipt Date: 20050527
  Transmission Date: 20060218
  Serious: Yes (Hospitalization)
  Sender: FDA-Public Use
  Company Number: A03200501603

PATIENT
  Age: 57 Year
  Sex: Male
  Weight: 66.2252 kg

DRUGS (2)
  1. ELOXATIN [Suspect]
     Indication: COLON CANCER METASTATIC
     Dosage: 150 MG OTHER - INTRAVENOUS NOS
     Route: 042
     Dates: start: 20050525, end: 20050525
  2. LEUCOVORIN [Concomitant]

REACTIONS (4)
  - CHILLS [None]
  - CYANOSIS [None]
  - PYREXIA [None]
  - RESPIRATORY DISTRESS [None]
